FAERS Safety Report 5011096-0 (Version None)
Quarter: 2006Q2

REPORT INFORMATION
  Report Type: 
  Country: None (occurrence: None)
  Receive Date: 20060523
  Receipt Date: 20060512
  Transmission Date: 20061013
  Serious: Yes (Other)
  Sender: FDA-Public Use
  Company Number: BR-2006-011670

PATIENT
  Age: 63 Year
  Sex: Female

DRUGS (1)
  1. BETASERON [Suspect]
     Indication: MULTIPLE SCLEROSIS
     Dosage: 1 ML, 250UG, EVERY 2D, SUBCUTANEOUS
     Route: 058
     Dates: start: 20000101

REACTIONS (2)
  - BLINDNESS TRANSIENT [None]
  - OPTIC NEURITIS [None]
